FAERS Safety Report 7150325-4 (Version None)
Quarter: 2010Q4

REPORT INFORMATION
  Report Type: 
  Country: None (occurrence: None)
  Receive Date: 20101210
  Receipt Date: 20101202
  Transmission Date: 20110411
  Serious: Yes (Hospitalization)
  Sender: FDA-Public Use
  Company Number: SE-NOVOPROD-319446

PATIENT
  Age: 50 Year
  Sex: Male
  Weight: 76 kg

DRUGS (2)
  1. NOVORAPID FLEXPEN [Suspect]
     Indication: DIABETES MELLITUS
     Dosage: 7 E X 3
     Route: 065
  2. SIMVASTATIN [Concomitant]
     Dosage: UNK

REACTIONS (2)
  - DEVICE MALFUNCTION [None]
  - LOSS OF CONSCIOUSNESS [None]
